FAERS Safety Report 8216824-9 (Version None)
Quarter: 2012Q1

REPORT INFORMATION
  Report Type: 
  Country: None (occurrence: None)
  Receive Date: 20120316
  Receipt Date: 20120312
  Transmission Date: 20120608
  Serious: Yes (Hospitalization)
  Sender: FDA-Public Use
  Company Number: FR-MERCK-1203USA01740

PATIENT
  Age: 84 Year
  Sex: Male

DRUGS (10)
  1. PROSCAR [Concomitant]
     Indication: BENIGN PROSTATIC HYPERPLASIA
     Route: 048
     Dates: start: 20091211, end: 20120207
  2. AMITRIPTYLINE HCL [Concomitant]
     Dosage: 40MG/ML
     Route: 048
     Dates: start: 20101117
  3. MOVIPREP [Concomitant]
     Route: 048
     Dates: start: 20091211, end: 20120207
  4. BROMAZEPAM [Concomitant]
     Route: 048
     Dates: start: 20091211, end: 20120207
  5. PREVISCAN [Suspect]
     Indication: ATRIAL FIBRILLATION
     Route: 048
     Dates: start: 20120206, end: 20120207
  6. NOROXIN [Suspect]
     Route: 048
     Dates: start: 20120202, end: 20120207
  7. TRIMETAZIDINE HYDROCHLORIDE [Concomitant]
     Route: 048
     Dates: start: 20091211, end: 20120207
  8. BISOPROLOL FUMARATE [Concomitant]
     Indication: ATRIAL FIBRILLATION
     Route: 048
     Dates: start: 20091211
  9. FENOFIBRATE [Concomitant]
     Route: 048
     Dates: start: 20091211, end: 20120207
  10. MICARDIS [Concomitant]
     Route: 048
     Dates: start: 20091211

REACTIONS (5)
  - HAEMATURIA [None]
  - INTERNATIONAL NORMALISED RATIO INCREASED [None]
  - ANAEMIA [None]
  - OVERDOSE [None]
  - DRUG INTERACTION [None]
